FAERS Safety Report 12202449 (Version 2)
Quarter: 2016Q1

REPORT INFORMATION
  Report Type: Spontaneous
  Country: NL (occurrence: NL)
  Receive Date: 20160323
  Receipt Date: 20160331
  Transmission Date: 20160526
  Serious: Yes (Death, Life-Threatening, Hospitalization)
  Sender: FDA-Public Use
  Company Number: NL-ALVOGEN-2016-ALVOGEN-022986

PATIENT
  Age: 35 Year
  Sex: Female

DRUGS (4)
  1. CLOFAZIMINE [Concomitant]
     Active Substance: CLOFAZIMINE
     Indication: LEPROSY
  2. INSULIN [Concomitant]
     Active Substance: INSULIN NOS
     Indication: PRODUCT USED FOR UNKNOWN INDICATION
  3. DAPSONE. [Suspect]
     Active Substance: DAPSONE
     Indication: LEPROSY
  4. RIFAMPICIN [Concomitant]
     Active Substance: RIFAMPIN
     Indication: LEPROSY

REACTIONS (2)
  - Drug reaction with eosinophilia and systemic symptoms [Fatal]
  - Eosinophilic myocarditis [Fatal]

NARRATIVE: CASE EVENT DATE: 20130902
